FAERS Safety Report 8394896-9 (Version None)
Quarter: 2012Q2

REPORT INFORMATION
  Report Type: 
  Country: None (occurrence: None)
  Receive Date: 20120530
  Receipt Date: 20110405
  Transmission Date: 20120825
  Serious: No
  Sender: FDA-Public Use
  Company Number: US-GLAXOSMITHKLINE-A0922721A

PATIENT
  Age: 41 Year
  Sex: Female
  Weight: 84.4 kg

DRUGS (7)
  1. FLOLAN [Suspect]
     Indication: PULMONARY ARTERIAL HYPERTENSION
     Dosage: 35.4NGKM UNKNOWN
     Route: 065
     Dates: start: 20100827
  2. DAILY MULTIVITAMIN [Concomitant]
  3. LACTULOSE [Concomitant]
  4. LASIX [Concomitant]
     Dosage: 40MG PER DAY
  5. THIAMINE [Concomitant]
  6. METHADON HCL TAB [Concomitant]
     Dosage: 10MG PER DAY
  7. NEURONTIN [Concomitant]
     Indication: PAIN IN EXTREMITY
     Dosage: 400MG THREE TIMES PER DAY

REACTIONS (4)
  - ALOPECIA [None]
  - PAIN IN JAW [None]
  - PAIN IN EXTREMITY [None]
  - HEADACHE [None]
